FAERS Safety Report 9970003 (Version 1)
Quarter: 2014Q1

REPORT INFORMATION
  Report Type: Spontaneous
  Country: US (occurrence: None)
  Receive Date: 20140131
  Receipt Date: 20140131
  Transmission Date: 20141002
  Serious: Yes (Other)
  Sender: FDA-Public Use
  Company Number: 087077

PATIENT
  Sex: Female
  Weight: 65.8 kg

DRUGS (4)
  1. KEPPRA [Suspect]
     Indication: CONVULSION
     Dosage: 1500 MG BID, STRENGTH:  750 MG ORAL?
     Route: 048
     Dates: start: 201209
  2. FOLIC ACID [Concomitant]
  3. TEGRETOL [Concomitant]
  4. NIFELAT /00340701/ [Concomitant]

REACTIONS (5)
  - Complex partial seizures [None]
  - Eye pain [None]
  - Headache [None]
  - Dizziness [None]
  - Inappropriate schedule of drug administration [None]
